FAERS Safety Report 25583338 (Version 4)
Quarter: 2025Q3

REPORT INFORMATION
  Report Type: Spontaneous
  Country: CA (occurrence: CA)
  Receive Date: 20250721
  Receipt Date: 20250925
  Transmission Date: 20251020
  Serious: Yes (Hospitalization, Other)
  Sender: CELLTRION
  Company Number: CA-CELLTRION INC.-2025CA018679

PATIENT

DRUGS (4)
  1. INFLIXIMAB [Suspect]
     Active Substance: INFLIXIMAB
     Indication: Rheumatoid arthritis
     Dosage: 500 MG, EVERY 4 WEEKS (MAINTENANCE)
     Route: 042
     Dates: start: 20250507
  2. INFLIXIMAB [Suspect]
     Active Substance: INFLIXIMAB
     Dosage: 500 MG, EVERY 4 WEEKS (MAINTENANCE)
     Route: 042
     Dates: start: 20250507
  3. INFLIXIMAB [Suspect]
     Active Substance: INFLIXIMAB
     Dosage: 500 MG, EVERY 4 WEEKS (MAINTENANCE)
     Route: 042
     Dates: start: 20250507
  4. INFLIXIMAB [Suspect]
     Active Substance: INFLIXIMAB
     Dosage: 500 MG, EVERY 4 WEEKS (MAINTENANCE)
     Route: 042
     Dates: start: 20250507

REACTIONS (5)
  - Cholecystectomy [Recovered/Resolved]
  - Post procedural drainage [Unknown]
  - Therapy interrupted [Unknown]
  - Off label use [Unknown]
  - Treatment delayed [Recovered/Resolved]

NARRATIVE: CASE EVENT DATE: 20250610
